FAERS Safety Report 25101200 (Version 2)
Quarter: 2025Q1

REPORT INFORMATION
  Report Type: Spontaneous
  Country: JP (occurrence: JP)
  Receive Date: 20250320
  Receipt Date: 20250328
  Transmission Date: 20250408
  Serious: Yes (Other)
  Sender: SANDOZ
  Company Number: JP-SANDOZ-SDZ2024JP038662

PATIENT
  Age: 71 Year
  Sex: Female

DRUGS (13)
  1. CARBOPLATIN [Suspect]
     Active Substance: CARBOPLATIN
     Route: 065
  2. CARBOPLATIN [Suspect]
     Active Substance: CARBOPLATIN
     Route: 065
  3. CARBOPLATIN [Suspect]
     Active Substance: CARBOPLATIN
     Route: 065
  4. CARBOPLATIN [Suspect]
     Active Substance: CARBOPLATIN
     Route: 065
  5. CARBOPLATIN [Suspect]
     Active Substance: CARBOPLATIN
     Indication: Malignant peritoneal neoplasm
     Route: 065
  6. APIXABAN [Concomitant]
     Active Substance: APIXABAN
     Indication: Cerebral infarction
     Route: 048
  7. PREDNISOLONE [Concomitant]
     Active Substance: PREDNISOLONE
     Indication: Product used for unknown indication
     Route: 048
  8. CYCLOSPORINE [Interacting]
     Active Substance: CYCLOSPORINE
     Indication: Prophylaxis against transplant rejection
     Route: 048
  9. PACLITAXEL [Interacting]
     Active Substance: PACLITAXEL
     Indication: Malignant peritoneal neoplasm
     Route: 065
  10. PACLITAXEL [Interacting]
     Active Substance: PACLITAXEL
     Route: 065
  11. PACLITAXEL [Interacting]
     Active Substance: PACLITAXEL
     Route: 065
  12. PACLITAXEL [Interacting]
     Active Substance: PACLITAXEL
     Route: 065
  13. PACLITAXEL [Interacting]
     Active Substance: PACLITAXEL
     Route: 065

REACTIONS (7)
  - Myelosuppression [Unknown]
  - Myocardial infarction [Unknown]
  - Cardiac failure [Unknown]
  - Electrolyte imbalance [Unknown]
  - Diarrhoea [Unknown]
  - Drug interaction [Unknown]
  - Off label use [Unknown]
